FAERS Safety Report 6681483-3 (Version None)
Quarter: 2010Q2

REPORT INFORMATION
  Report Type: 
  Country: None (occurrence: None)
  Receive Date: 20100414
  Receipt Date: 20100406
  Transmission Date: 20101027
  Serious: Yes (Disabling, Other)
  Sender: FDA-Public Use
  Company Number: GB-SANOFI-AVENTIS-2010SA019897

PATIENT
  Age: 38 Year
  Sex: Female
  Weight: 85 kg

DRUGS (5)
  1. FEXOFENADINE HCL [Suspect]
     Indication: DRUG USE FOR UNKNOWN INDICATION
  2. LAMICTAL [Suspect]
     Indication: EPILEPSY
     Route: 048
     Dates: start: 19960101
  3. LAMICTAL [Suspect]
     Dosage: 100 MG TWICE DAILY, 50 MG TWICE DAILY, AND A FURTHER 50 MG AT MIDDAY.
     Route: 048
     Dates: start: 20080301
  4. LAMICTAL [Suspect]
     Route: 048
     Dates: start: 20080301
  5. SALBUTAMOL [Concomitant]
     Indication: DRUG USE FOR UNKNOWN INDICATION
     Dosage: DOSE:2 PUFF(S)
     Route: 055

REACTIONS (12)
  - ANGIOEDEMA [None]
  - ASTHMA [None]
  - CONTUSION [None]
  - DIZZINESS [None]
  - HYPERSENSITIVITY [None]
  - MALAISE [None]
  - OEDEMA MOUTH [None]
  - PARAESTHESIA ORAL [None]
  - RASH [None]
  - RASH GENERALISED [None]
  - RASH PRURITIC [None]
  - URTICARIA [None]
